FAERS Safety Report 7575231-2 (Version None)
Quarter: 2011Q2

REPORT INFORMATION
  Report Type: 
  Country: None (occurrence: None)
  Receive Date: 20110627
  Receipt Date: 20090105
  Transmission Date: 20111010
  Serious: Yes (Hospitalization, Other)
  Sender: FDA-Public Use
  Company Number: US-BAYER-200841867NA

PATIENT
  Age: 51 Year
  Sex: Male
  Weight: 95 kg

DRUGS (20)
  1. TRASYLOL [Suspect]
     Indication: PRODUCT USED FOR UNKNOWN INDICATION
     Dosage: 200 ML, ONCE, LOADING DOSE
     Route: 042
     Dates: start: 20061121, end: 20061121
  2. LIPITOR [Concomitant]
     Dosage: 80 MG, QD
  3. FRESH FROZEN PLASMA [Concomitant]
     Dosage: 7 U, ONCE
     Route: 042
     Dates: start: 20061121
  4. POTASSIUM CHLORIDE [Concomitant]
     Dosage: 40 MEQ, UNK
     Route: 042
     Dates: start: 20061121, end: 20061121
  5. PAVULON [Concomitant]
     Dosage: 16 MG, UNK
     Route: 042
     Dates: start: 20061121, end: 20061121
  6. NOREPINEPHRINE BITARTRATE [Concomitant]
     Dosage: ILLEGIBLE
     Route: 042
     Dates: start: 20061121, end: 20061121
  7. AMIDATE [Concomitant]
     Dosage: 20 MG, UNK
     Route: 042
     Dates: start: 20061121, end: 20061121
  8. GEMFIBROZIL [Concomitant]
     Dosage: 600 MG, QD, LONG TERM USE
     Route: 048
  9. ACETYLSALICYLIC ACID SRT [Concomitant]
     Dosage: 325 MG, QD
     Route: 048
  10. EPINEPHRINE [Concomitant]
     Dosage: 20 MCG/KG/HOUR
     Route: 042
     Dates: start: 20061121, end: 20061121
  11. MIDAZOLAM HCL [Concomitant]
     Dosage: 20 MG, UNK
     Route: 042
     Dates: start: 20061121, end: 20061121
  12. MILRINONE [Concomitant]
     Dosage: DRIP
     Route: 042
     Dates: start: 20061121, end: 20061121
  13. PLATELETS [Concomitant]
     Dosage: 2 PACKS
     Route: 042
     Dates: start: 20061121
  14. TRASYLOL [Suspect]
     Indication: CORONARY ARTERY BYPASS
     Dosage: 50ML/HR INFUSION
     Route: 042
     Dates: start: 20061121, end: 20061121
  15. VIAGRA [Concomitant]
     Dosage: 50 MG, UNK
     Route: 048
  16. RED BLOOD CELLS [Concomitant]
     Dosage: 6 U, ONCE
     Route: 042
     Dates: start: 20061121
  17. CRYOPRECIPITATES [Concomitant]
     Dosage: 1 U, ONCE
     Route: 042
     Dates: start: 20061121
  18. VANCOMYCIN [Concomitant]
     Dosage: 1 G, UNK
     Route: 042
     Dates: start: 20061121, end: 20061121
  19. ESMOLOL [Concomitant]
     Dosage: 6 MG, UNK
     Route: 042
     Dates: start: 20061121, end: 20061121
  20. DOBUTAMINE HCL [Concomitant]
     Dosage: DRIP
     Route: 042
     Dates: start: 20061121, end: 20061121

REACTIONS (13)
  - ANXIETY [None]
  - PAIN [None]
  - RENAL INJURY [None]
  - CARDIAC FAILURE CONGESTIVE [None]
  - DECREASED ACTIVITY [None]
  - RENAL FAILURE [None]
  - EMOTIONAL DISTRESS [None]
  - PULMONARY OEDEMA [None]
  - STRESS [None]
  - MULTI-ORGAN FAILURE [None]
  - UNEVALUABLE EVENT [None]
  - FEAR [None]
  - RENAL IMPAIRMENT [None]
